FAERS Safety Report 17584643 (Version 1)
Quarter: 2020Q1

REPORT INFORMATION
  Report Type: Spontaneous
  Country: US (occurrence: US)
  Receive Date: 20200326
  Receipt Date: 20200326
  Transmission Date: 20200409
  Serious: Yes (Hospitalization)
  Sender: FDA-Public Use
  Company Number: US-PFIZER INC-2020125697

PATIENT
  Age: 20 Year
  Sex: Male

DRUGS (1)
  1. VINCRISTINE SULFATE. [Suspect]
     Active Substance: VINCRISTINE SULFATE
     Indication: ACUTE LYMPHOCYTIC LEUKAEMIA
     Dosage: 2 MG, SINGLE (2 MILLIGRAM, ONCE; ORAL)
     Route: 048
     Dates: start: 20200127, end: 20200224

REACTIONS (1)
  - Neuropathy peripheral [Unknown]
